FAERS Safety Report 8053874-X (Version None)
Quarter: 2011Q4

REPORT INFORMATION
  Report Type: 
  Country: None (occurrence: None)
  Receive Date: 20111213
  Receipt Date: 20110817
  Transmission Date: 20120403
  Serious: No
  Sender: FDA-Public Use
  Company Number: 2011SP039000

PATIENT
  Sex: Male

DRUGS (2)
  1. ZOLOFT [Concomitant]
  2. SAPHRIS [Suspect]
     Indication: BIPOLAR DISORDER
     Dosage: SL
     Route: 060
     Dates: start: 20110101, end: 20110101

REACTIONS (4)
  - FEELING ABNORMAL [None]
  - ANXIETY [None]
  - INSOMNIA [None]
  - FEELING JITTERY [None]
